FAERS Safety Report 7168292-6 (Version None)
Quarter: 2010Q4

REPORT INFORMATION
  Report Type: 
  Country: None (occurrence: None)
  Receive Date: 20101216
  Receipt Date: 20101208
  Transmission Date: 20110411
  Serious: Yes (Hospitalization)
  Sender: FDA-Public Use
  Company Number: US-ABBOTT-10P-163-0689298-00

PATIENT
  Age: 27 Year
  Sex: Female

DRUGS (3)
  1. HUMIRA [Suspect]
     Indication: CROHN'S DISEASE
  2. HUMIRA [Suspect]
  3. IMURAN [Concomitant]
     Indication: CROHN'S DISEASE

REACTIONS (1)
  - COLONIC STENOSIS [None]
